FAERS Safety Report 14295442 (Version 17)
Quarter: 2020Q4

REPORT INFORMATION
  Report Type: Spontaneous
  Country: US (occurrence: US)
  Receive Date: 20171218
  Receipt Date: 20201005
  Transmission Date: 20210113
  Serious: No
  Sender: FDA-Public Use
  Company Number: US-PFIZER INC-2017536697

PATIENT
  Age: 76 Year
  Sex: Female
  Weight: 60.5 kg

DRUGS (5)
  1. LYRICA [Suspect]
     Active Substance: PREGABALIN
     Indication: PARAESTHESIA
     Dosage: 50 MG, AS NEEDED (TAKES DAILY SCHEDULED AND IN THE EVENING PRN (AS NEEDED)
  2. LYRICA [Suspect]
     Active Substance: PREGABALIN
     Indication: PARAESTHESIA
     Dosage: 50 MG, 1X/DAY
  3. LYRICA [Suspect]
     Active Substance: PREGABALIN
     Indication: NEURALGIA
     Dosage: 50 MG, 2X/DAY (TAKE 1 CAP (50 MG TOTAL) BY MOUTH 2 TIMES DAILY)
     Route: 048
  4. LYRICA [Suspect]
     Active Substance: PREGABALIN
     Indication: PAIN
     Dosage: 3 DF
  5. LYRICA [Suspect]
     Active Substance: PREGABALIN
     Indication: PAIN IN EXTREMITY
     Dosage: UNK

REACTIONS (3)
  - Intentional product use issue [Unknown]
  - Intentional dose omission [Unknown]
  - Therapeutic product effect decreased [Unknown]
